FAERS Safety Report 5387465-6 (Version None)
Quarter: 2007Q3

REPORT INFORMATION
  Report Type: 
  Country: None (occurrence: None)
  Receive Date: 20070711
  Receipt Date: 20070711
  Transmission Date: 20080115
  Serious: Yes (Hospitalization)
  Sender: FDA-Public Use
  Company Number: None

PATIENT
  Sex: Female
  Weight: 76.66 kg

DRUGS (12)
  1. CISPLATIN [Suspect]
     Dosage: 92 MG
  2. DOXORUBICIN HYDROCHLORIDE [Suspect]
     Dosage: 83 MG
  3. TAXOL [Suspect]
     Dosage: 294 MG
  4. ARICEPT [Concomitant]
  5. COZAAR [Concomitant]
  6. ACETAMINOPHEN AND HYDROCODONE BITARTRATE [Concomitant]
  7. LIPITOR [Concomitant]
  8. MAGNESIUM TABS [Concomitant]
  9. MULTIVITAMINS TABS [Concomitant]
  10. PROMETHAZINE [Concomitant]
  11. ZOFRAN [Concomitant]
  12. ZOLOFT [Concomitant]

REACTIONS (18)
  - ANAEMIA [None]
  - BLOOD ALBUMIN ABNORMAL [None]
  - BLOOD MAGNESIUM DECREASED [None]
  - BLOOD POTASSIUM DECREASED [None]
  - BRAIN NATRIURETIC PEPTIDE INCREASED [None]
  - CARDIOMEGALY [None]
  - CULTURE URINE POSITIVE [None]
  - DEHYDRATION [None]
  - DYSPNOEA [None]
  - ELECTROCARDIOGRAM QT PROLONGED [None]
  - HAEMOGLOBIN DECREASED [None]
  - NAUSEA [None]
  - NEUTROPHIL COUNT DECREASED [None]
  - PLATELET COUNT DECREASED [None]
  - PROTEUS INFECTION [None]
  - SINUS TACHYCARDIA [None]
  - VOMITING [None]
  - WHITE BLOOD CELL COUNT DECREASED [None]
